FAERS Safety Report 22001789 (Version 2)
Quarter: 2023Q1

REPORT INFORMATION
  Report Type: Spontaneous
  Country: IT (occurrence: IT)
  Receive Date: 20230216
  Receipt Date: 20230302
  Transmission Date: 20230418
  Serious: Yes (Death, Hospitalization, Other)
  Sender: FDA-Public Use
  Company Number: IT-TEVA-2023-IT-2855821

PATIENT
  Age: 51 Year
  Sex: Female

DRUGS (10)
  1. FLUOROURACIL [Suspect]
     Active Substance: FLUOROURACIL
     Indication: Adenocarcinoma gastric
     Route: 065
  2. DOCETAXEL [Suspect]
     Active Substance: DOCETAXEL
     Indication: Adenocarcinoma gastric
     Route: 065
  3. OXALIPLATIN [Suspect]
     Active Substance: OXALIPLATIN
     Indication: Adenocarcinoma gastric
     Route: 065
  4. PACLITAXEL [Suspect]
     Active Substance: PACLITAXEL
     Indication: Adenocarcinoma gastric
     Route: 065
  5. LEUCOVORIN [Suspect]
     Active Substance: LEUCOVORIN
     Indication: Adenocarcinoma gastric
     Route: 065
  6. RAMUCIRUMAB [Suspect]
     Active Substance: RAMUCIRUMAB
     Indication: Adenocarcinoma gastric
     Route: 065
  7. IRINOTECAN [Suspect]
     Active Substance: IRINOTECAN
     Indication: Adenocarcinoma gastric
     Route: 065
  8. CAPECITABINE [Suspect]
     Active Substance: CAPECITABINE
     Indication: Adenocarcinoma gastric
     Route: 065
  9. ALECTINIB [Suspect]
     Active Substance: ALECTINIB
     Indication: Adenocarcinoma gastric
     Dosage: 1200 MILLIGRAM DAILY; 600 MG TWO TIMES A DAY
     Route: 065
     Dates: start: 202005, end: 202010
  10. LORLATINIB [Suspect]
     Active Substance: LORLATINIB
     Indication: Adenocarcinoma gastric
     Dosage: 100 MILLIGRAM DAILY; SECOND LINE TREATMENT , 50 MG TWICE A DAY
     Route: 065
     Dates: start: 202012

REACTIONS (3)
  - Drug ineffective [Fatal]
  - Drug resistance [Fatal]
  - Gene mutation [Unknown]
